FAERS Safety Report 7970668-1 (Version None)
Quarter: 2011Q4

REPORT INFORMATION
  Report Type: 
  Country: None (occurrence: None)
  Receive Date: 20111212
  Receipt Date: 20111208
  Transmission Date: 20120403
  Serious: Yes (Death, Hospitalization)
  Sender: FDA-Public Use
  Company Number: PHHY2011IT107117

PATIENT
  Age: 76 Year
  Sex: Male

DRUGS (5)
  1. CARBOPLATIN [Suspect]
     Indication: LUNG ADENOCARCINOMA
  2. GEMCITABINE [Suspect]
     Indication: LUNG ADENOCARCINOMA
  3. PYRIDOSTIGMINE BROMIDE [Concomitant]
  4. ASPIRIN [Concomitant]
  5. LANSOPRAZOLE [Concomitant]

REACTIONS (18)
  - PROGRESSIVE MULTIFOCAL LEUKOENCEPHALOPATHY [None]
  - DYSKINESIA [None]
  - SOMNOLENCE [None]
  - RESPIRATORY DISORDER [None]
  - ATTENTION DEFICIT/HYPERACTIVITY DISORDER [None]
  - MUSCULAR WEAKNESS [None]
  - MENTAL IMPAIRMENT [None]
  - LETHARGY [None]
  - LEUKOPENIA [None]
  - CRANIAL NERVE PARALYSIS [None]
  - GRAND MAL CONVULSION [None]
  - HEMIPARESIS [None]
  - DYSARTHRIA [None]
  - CONFUSIONAL STATE [None]
  - JC VIRUS INFECTION [None]
  - EXTENSOR PLANTAR RESPONSE [None]
  - COGNITIVE DISORDER [None]
  - DEPRESSED LEVEL OF CONSCIOUSNESS [None]
